FAERS Safety Report 23138925 (Version 1)
Quarter: 2023Q4

REPORT INFORMATION
  Report Type: Spontaneous
  Country: US (occurrence: US)
  Receive Date: 20231102
  Receipt Date: 20231102
  Transmission Date: 20240110
  Serious: Yes (Death)
  Sender: FDA-Public Use
  Company Number: US-AMNEAL PHARMACEUTICALS-2023-AMRX-03826

PATIENT
  Sex: Female

DRUGS (1)
  1. RYTARY [Suspect]
     Active Substance: CARBIDOPA\LEVODOPA
     Indication: Parkinson^s disease
     Dosage: TAKE 1 CAPSULE BY MOUTH IN THE MORNING ABOUT 7AM, 1 CAPSULE BY MOUTH AT NOON, 1 CAPSULE BY MOUTH AT
     Route: 048

REACTIONS (1)
  - Adverse event [Fatal]
